FAERS Safety Report 6021884-X (Version None)
Quarter: 2008Q4

REPORT INFORMATION
  Report Type: 
  Country: None (occurrence: None)
  Receive Date: 20081229
  Receipt Date: 20081218
  Transmission Date: 20090506
  Serious: Yes (Death)
  Sender: FDA-Public Use
  Company Number: JP-AMGEN-US325003

PATIENT
  Sex: Female
  Weight: 52 kg

DRUGS (2)
  1. ENBREL [Suspect]
     Indication: RHEUMATOID ARTHRITIS
     Dosage: 235 MG TWICE WEEKLY; LYOPHILIZED
     Route: 058
     Dates: start: 20080630, end: 20080925
  2. CORTRIL [Concomitant]
     Indication: RHEUMATOID ARTHRITIS
     Route: 048
     Dates: start: 20060530, end: 20081006

REACTIONS (1)
  - SUBDURAL HAEMORRHAGE [None]
